FAERS Safety Report 20004985 (Version 1)
Quarter: 2021Q4

REPORT INFORMATION
  Report Type: Spontaneous
  Country: US (occurrence: US)
  Receive Date: 20211027
  Receipt Date: 20211027
  Transmission Date: 20220303
  Serious: Yes (Life-Threatening, Hospitalization, Other)
  Sender: FDA-Public Use
  Company Number: US-ALLERGAN-2135999US

PATIENT
  Sex: Female

DRUGS (1)
  1. LEVONORGESTREL [Suspect]
     Active Substance: LEVONORGESTREL
     Indication: Contraception
     Dosage: 52 MG, SINGLE
     Route: 015

REACTIONS (5)
  - Haemoperitoneum [Recovered/Resolved]
  - Ruptured ectopic pregnancy [Recovered/Resolved]
  - Device issue [Unknown]
  - Amenorrhoea [Unknown]
  - Drug ineffective [Unknown]
